FAERS Safety Report 8882610 (Version 1)
Quarter: 2012Q4

REPORT INFORMATION
  Report Type: 
  Country: AU (occurrence: AU)
  Receive Date: 20121102
  Receipt Date: 20121102
  Transmission Date: 20130627
  Serious: Yes (Death)
  Sender: FDA-Public Use
  Company Number: PHHY2011AU116330

PATIENT
  Age: 87 Year
  Sex: Female

DRUGS (3)
  1. ACLASTA [Suspect]
     Dosage: 5 mg
     Route: 042
     Dates: start: 20090915
  2. ACLASTA [Suspect]
     Dosage: 5 mg
     Route: 042
     Dates: start: 20100928
  3. ACLASTA [Suspect]
     Dosage: 5 mg
     Route: 042
     Dates: start: 20111014

REACTIONS (2)
  - Death [Fatal]
  - Malaise [Recovered/Resolved]
